FAERS Safety Report 12864799 (Version 8)
Quarter: 2017Q4

REPORT INFORMATION
  Report Type: Report from Study
  Country: PL (occurrence: PL)
  Receive Date: 20161020
  Receipt Date: 20171006
  Transmission Date: 20180320
  Serious: Yes (Life-Threatening, Hospitalization)
  Sender: FDA-Public Use
  Company Number: PL-ROCHE-1600274

PATIENT
  Age: 58 Year
  Sex: Male
  Weight: 74 kg

DRUGS (17)
  1. PANTOPRAZOLE [Concomitant]
     Active Substance: PANTOPRAZOLE
     Route: 048
  2. ONDANSETRONUM [Concomitant]
     Active Substance: ONDANSETRON
     Indication: NAUSEA
     Route: 042
     Dates: start: 20150729, end: 20150805
  3. ZOLEDRONIC ACID [Concomitant]
     Active Substance: ZOLEDRONIC ACID
     Indication: METASTASES TO BONE
     Route: 042
     Dates: start: 20150723, end: 20150723
  4. OROCAL D3 [Concomitant]
     Active Substance: CALCIUM CARBONATE\CHOLECALCIFEROL
     Dosage: 500 UNIT
     Route: 048
     Dates: start: 20150624, end: 20150805
  5. LACTULOSE. [Concomitant]
     Active Substance: LACTULOSE
     Indication: CONSTIPATION
     Route: 048
     Dates: start: 20150730
  6. FENTANYL. [Concomitant]
     Active Substance: FENTANYL
     Indication: PAIN
     Route: 062
     Dates: start: 201507, end: 20150724
  7. ATEZOLIZUMAB. [Suspect]
     Active Substance: ATEZOLIZUMAB
     Indication: BLADDER TRANSITIONAL CELL CARCINOMA METASTATIC
     Dosage: MOST RECENT DOSE WAS ADMINISTERED ON 24/JUN/2015
     Route: 042
     Dates: start: 20150603
  8. ACETYLSALICYLIC ACID [Concomitant]
     Active Substance: ASPIRIN
     Route: 048
     Dates: start: 20130901, end: 20150728
  9. ESTAZOLAM. [Concomitant]
     Active Substance: ESTAZOLAM
     Indication: SLEEP DISORDER
     Route: 048
     Dates: start: 20150729, end: 20150805
  10. LEVOFLOXACINE [Concomitant]
     Active Substance: LEVOFLOXACIN
     Indication: URINARY TRACT INFECTION
     Route: 048
     Dates: start: 20150615, end: 20150724
  11. KETOPROFENUM [Concomitant]
     Indication: PAIN
     Route: 048
     Dates: start: 20150624, end: 20150805
  12. FENTANYL. [Concomitant]
     Active Substance: FENTANYL
     Indication: PAIN
     Route: 062
     Dates: start: 20150623, end: 20150710
  13. FENTANYL. [Concomitant]
     Active Substance: FENTANYL
     Indication: PAIN
     Route: 045
     Dates: start: 20150710
  14. MORPHINI SULFAS [Concomitant]
     Indication: PAIN
     Route: 048
     Dates: start: 20150724, end: 20150729
  15. GABAPENTINE [Concomitant]
     Active Substance: GABAPENTIN
     Indication: PAIN
     Route: 048
     Dates: start: 20150624, end: 20150805
  16. BUPRENORPHINE. [Concomitant]
     Active Substance: BUPRENORPHINE
     Dosage: THE PATIENT ORDERED THE MEDICATION FOR HIMSELF AS A REMEDY FOR BACK PAIN (THE PATIENT IS A M.D.)
     Route: 062
     Dates: start: 20150602, end: 20150623
  17. LAKCID [Concomitant]
     Active Substance: LACTOBACILLUS ACIDOPHILUS
     Indication: PROPHYLAXIS
     Route: 048
     Dates: start: 20150729

REACTIONS (4)
  - Renal failure [Not Recovered/Not Resolved]
  - Hydronephrosis [Recovered/Resolved]
  - Pneumonia [Not Recovered/Not Resolved]
  - Hepatotoxicity [Not Recovered/Not Resolved]

NARRATIVE: CASE EVENT DATE: 20150625
